FAERS Safety Report 4307801-9 (Version None)
Quarter: 2004Q1

REPORT INFORMATION
  Report Type: 
  Country: None (occurrence: None)
  Receive Date: 20040223
  Receipt Date: 20040216
  Transmission Date: 20041129
  Serious: Yes (Hospitalization)
  Sender: FDA-Public Use
  Company Number: 601093

PATIENT
  Age: 52 Year
  Sex: Female
  Weight: 68.9467 kg

DRUGS (7)
  1. GAMMAGARD S/D [Suspect]
     Indication: CHRONIC INFLAMMATORY DEMYELINATING POLYRADICULONEUROPATHY
     Dosage: 160 GM; Q4W; INTRAVENOUS
     Route: 042
     Dates: start: 20040202, end: 20040204
  2. PREDNISONE [Concomitant]
  3. BENADRYL [Concomitant]
  4. SOLU-MEDROL [Concomitant]
  5. MOTRIN [Concomitant]
  6. ESTRACE [Concomitant]
  7. CLARITIN [Concomitant]

REACTIONS (7)
  - ANXIETY [None]
  - CHILLS [None]
  - HEADACHE [None]
  - INFUSION RELATED REACTION [None]
  - MYOCARDIAL INFARCTION [None]
  - RASH [None]
  - VISUAL DISTURBANCE [None]
